FAERS Safety Report 9632081 (Version 1)
Quarter: 2013Q4

REPORT INFORMATION
  Report Type: Spontaneous
  Country: IT (occurrence: IT)
  Receive Date: 20131018
  Receipt Date: 20131018
  Transmission Date: 20140711
  Serious: Yes (Hospitalization)
  Sender: FDA-Public Use
  Company Number: IT-PFIZER INC-2013298593

PATIENT
  Age: 70 Year
  Sex: Female

DRUGS (3)
  1. HALCION [Suspect]
     Indication: INSOMNIA
     Dosage: 2 DF, TOTAL DOSAGE
     Route: 048
     Dates: start: 20130710, end: 20130710
  2. SEROQUEL [Concomitant]
     Dosage: 2 DF, UNK
  3. XANAX [Concomitant]

REACTIONS (4)
  - Asthenia [Recovering/Resolving]
  - Hypersomnia [Recovering/Resolving]
  - Somnolence [Recovering/Resolving]
  - Speech disorder [Recovering/Resolving]
